FAERS Safety Report 7235767-0 (Version None)
Quarter: 2011Q1

REPORT INFORMATION
  Report Type: 
  Country: None (occurrence: None)
  Receive Date: 20110120
  Receipt Date: 20110111
  Transmission Date: 20110831
  Serious: Yes (Other)
  Sender: FDA-Public Use
  Company Number: US-ASTRAZENECA-2011SE01941

PATIENT
  Age: 58 Year
  Sex: Female
  Weight: 68.9 kg

DRUGS (5)
  1. PRILOSEC [Suspect]
     Route: 048
  2. LEXAPRO [Concomitant]
     Indication: DEPRESSION
  3. CRESTOR [Suspect]
     Indication: HYPERCHOLESTEROLAEMIA
     Route: 048
  4. WELLBUTRIN [Concomitant]
     Indication: DEPRESSION
  5. HYDROCHLOROTHIAZIDE [Concomitant]
     Indication: HYPERTENSION

REACTIONS (7)
  - PAIN IN EXTREMITY [None]
  - DRUG DOSE OMISSION [None]
  - SYNCOPE [None]
  - DIZZINESS [None]
  - ABDOMINAL PAIN [None]
  - FACE INJURY [None]
  - NAUSEA [None]
